FAERS Safety Report 4623838-4 (Version None)
Quarter: 2005Q1

REPORT INFORMATION
  Report Type: 
  Country: None (occurrence: None)
  Receive Date: 20050329
  Receipt Date: 20050329
  Transmission Date: 20050727
  Serious: Yes (Death)
  Sender: FDA-Public Use
  Company Number: None

PATIENT
  Age: 20 Year
  Sex: Male

DRUGS (3)
  1. NEURONTIN [Suspect]
     Indication: PAIN
     Dosage: 2400MG DAILY, ORAL
     Route: 048
     Dates: start: 20000101, end: 20020723
  2. CELEXRA [Concomitant]
  3. BUPROPION HCL [Concomitant]

REACTIONS (1)
  - COMPLETED SUICIDE [None]
